FAERS Safety Report 15088294 (Version 2)
Quarter: 2018Q3

REPORT INFORMATION
  Report Type: Spontaneous
  Country: AT (occurrence: AT)
  Receive Date: 20180629
  Receipt Date: 20180717
  Transmission Date: 20181010
  Serious: Yes (Death, Hospitalization)
  Sender: FDA-Public Use
  Company Number: AT-ROCHE-2143343

PATIENT
  Age: 74 Year
  Sex: Male
  Weight: 61 kg

DRUGS (1)
  1. CAPECITABINE. [Suspect]
     Active Substance: CAPECITABINE
     Indication: ADENOCARCINOMA
     Route: 065

REACTIONS (1)
  - Diverticulitis [Unknown]
